FAERS Safety Report 6881625-0 (Version None)
Quarter: 2010Q3

REPORT INFORMATION
  Report Type: 
  Country: None (occurrence: None)
  Receive Date: 20100729
  Receipt Date: 20100720
  Transmission Date: 20110219
  Serious: No
  Sender: FDA-Public Use
  Company Number: US-BIOGENIDEC-2010BI025076

PATIENT
  Age: 56 Year
  Sex: Female

DRUGS (2)
  1. TYSABRI [Suspect]
     Indication: MULTIPLE SCLEROSIS
     Route: 042
     Dates: start: 20071005, end: 20081205
  2. TYSABRI [Suspect]
     Route: 042
     Dates: start: 20090818

REACTIONS (9)
  - BALANCE DISORDER [None]
  - CLAUSTROPHOBIA [None]
  - FALL [None]
  - FATIGUE [None]
  - FIBROMYALGIA [None]
  - MULTIPLE SCLEROSIS RELAPSE [None]
  - OEDEMA PERIPHERAL [None]
  - PANIC REACTION [None]
  - SOMNOLENCE [None]
